FAERS Safety Report 5057182-0 (Version None)
Quarter: 2006Q3

REPORT INFORMATION
  Report Type: 
  Country: None (occurrence: None)
  Receive Date: 20060721
  Receipt Date: 20050601
  Transmission Date: 20061208
  Serious: No
  Sender: FDA-Public Use
  Company Number: US-GLAXOSMITHKLINE-A0560750A

PATIENT
  Age: 74 Year
  Sex: Female

DRUGS (11)
  1. AVANDIA [Suspect]
     Dosage: 4MG PER DAY
     Route: 048
     Dates: start: 20050101
  2. AMARYL [Concomitant]
  3. COZAAR [Concomitant]
  4. ACTONEL [Concomitant]
  5. LEVOTHROID [Concomitant]
  6. LOVASTATIN [Concomitant]
  7. ECOTRIN [Concomitant]
  8. VITAMIN [Concomitant]
  9. TYLENOL [Concomitant]
  10. IRON SUPPLEMENT [Concomitant]
  11. POTASSIUM [Concomitant]

REACTIONS (2)
  - ARTHRALGIA [None]
  - OEDEMA PERIPHERAL [None]
